FAERS Safety Report 10661856 (Version 1)
Quarter: 2014Q4

REPORT INFORMATION
  Report Type: Spontaneous
  Country: US (occurrence: None)
  Receive Date: 20141217
  Receipt Date: 20141217
  Transmission Date: 20150529
  Serious: No
  Sender: FDA-Public Use
  Company Number: None

PATIENT
  Age: 29 Year
  Sex: Female

DRUGS (17)
  1. ACYCLOVIR. [Concomitant]
     Active Substance: ACYCLOVIR
  2. LANSOPRAZOLE. [Concomitant]
     Active Substance: LANSOPRAZOLE
  3. MILIRINONE [Concomitant]
  4. NESIRITIDE [Concomitant]
     Active Substance: NESIRITIDE
  5. TACROLIMUS. [Concomitant]
     Active Substance: TACROLIMUS
  6. TRAZODONE [Concomitant]
     Active Substance: TRAZODONE HYDROCHLORIDE
  7. METRONIDAZOLE. [Concomitant]
     Active Substance: METRONIDAZOLE
  8. POTASSIUM PHOSPHATE [Concomitant]
     Active Substance: POTASSIUM PHOSPHATE
  9. BUMETANIDE. [Concomitant]
     Active Substance: BUMETANIDE
  10. MAGNESIUM SULFATE. [Concomitant]
     Active Substance: MAGNESIUM SULFATE
  11. MYCOPHENOLATE [Concomitant]
     Active Substance: MYCOPHENOLIC ACID
  12. LEVOFLOXACIN. [Suspect]
     Active Substance: LEVOFLOXACIN
     Indication: PNEUMONIA
     Route: 042
     Dates: start: 20140926, end: 20140929
  13. INSULIN [Concomitant]
     Active Substance: INSULIN NOS
  14. PIPERACILLIN/TAZOBACTAM [Concomitant]
     Active Substance: PIPERACILLIN SODIUM\TAZOBACTAM SODIUM
  15. HEPARIN [Concomitant]
     Active Substance: HEPARIN SODIUM
  16. NYSTATIN. [Concomitant]
     Active Substance: NYSTATIN
  17. LEVOFLOXACIN. [Concomitant]
     Active Substance: LEVOFLOXACIN

REACTIONS (6)
  - Anxiety [None]
  - Insomnia [None]
  - Sleep disorder [None]
  - Delirium [None]
  - Paranoia [None]
  - Drug level increased [None]

NARRATIVE: CASE EVENT DATE: 20140929
